FAERS Safety Report 20263707 (Version 1)
Quarter: 2021Q4

REPORT INFORMATION
  Report Type: Report from Study
  Country: US (occurrence: US)
  Receive Date: 20211231
  Receipt Date: 20211231
  Transmission Date: 20220303
  Serious: Yes (Other)
  Sender: FDA-Public Use
  Company Number: US-TEVA-2021-US-1994456

PATIENT
  Age: 64 Year
  Sex: Female

DRUGS (21)
  1. AUSTEDO [Suspect]
     Active Substance: DEUTETRABENAZINE
     Indication: Tardive dyskinesia
     Dosage: 24 MILLIGRAM DAILY;
     Route: 065
     Dates: start: 20211202
  2. HYDROXYZINE [Concomitant]
     Active Substance: HYDROXYZINE HYDROCHLORIDE
  3. DULOXETINE [Concomitant]
     Active Substance: DULOXETINE
  4. MONTELUKAST [Concomitant]
     Active Substance: MONTELUKAST SODIUM
  5. TRAZODONE [Concomitant]
     Active Substance: TRAZODONE HYDROCHLORIDE
  6. BUPROPION [Concomitant]
     Active Substance: BUPROPION
  7. POTASSIUM [Concomitant]
     Active Substance: POTASSIUM
  8. FUROSEMIDE [Concomitant]
     Active Substance: FUROSEMIDE
  9. ALBUTEROL SULFATE [Concomitant]
     Active Substance: ALBUTEROL SULFATE
     Dosage: INHALATION NEBULIZATION SOLUTION (25MG/3ML) 0.083%
  10. ALBUTEROL SULFATE [Concomitant]
     Active Substance: ALBUTEROL SULFATE
     Dosage: INHALATION AEROSOL SOLUTION 108 (90 BASE) MCG/ACT
  11. ENTRESTO [Concomitant]
     Active Substance: SACUBITRIL\VALSARTAN
  12. TOPIRAMATE [Concomitant]
     Active Substance: TOPIRAMATE
  13. BETAMETHASONE DIPROPIONATE [Concomitant]
     Active Substance: BETAMETHASONE DIPROPIONATE
  14. GABAPENTIN [Concomitant]
     Active Substance: GABAPENTIN
  15. CYCLOBENZAPRINE [Concomitant]
     Active Substance: CYCLOBENZAPRINE
  16. EMGALITY [Concomitant]
     Active Substance: GALCANEZUMAB-GNLM
  17. PROMETHAZINE [Concomitant]
     Active Substance: PROMETHAZINE HYDROCHLORIDE
  18. LINZESS [Concomitant]
     Active Substance: LINACLOTIDE
  19. SEROQUEL [Concomitant]
     Active Substance: QUETIAPINE FUMARATE
  20. CLOBETASOL [Concomitant]
     Active Substance: CLOBETASOL
  21. AZITHROMYCIN [Concomitant]
     Active Substance: AZITHROMYCIN
     Route: 048

REACTIONS (1)
  - Cardiac flutter [Recovered/Resolved]

NARRATIVE: CASE EVENT DATE: 20211201
